FAERS Safety Report 19779274 (Version 1)
Quarter: 2021Q3

REPORT INFORMATION
  Report Type: Spontaneous
  Country: GB (occurrence: GB)
  Receive Date: 20210902
  Receipt Date: 20210902
  Transmission Date: 20211014
  Serious: Yes (Disabling, Other)
  Sender: FDA-Public Use
  Company Number: GB-MYLANLABS-2021M1057099

PATIENT
  Age: 65 Year
  Sex: Female
  Weight: 69.85 kg

DRUGS (2)
  1. AMLODIPINE [Suspect]
     Active Substance: AMLODIPINE BESYLATE
     Dosage: 5MG THEN 10MG
     Route: 048
     Dates: end: 20210510
  2. AMLODIPINE [Suspect]
     Active Substance: AMLODIPINE BESYLATE
     Indication: HYPERTENSION
     Dosage: 5MG THEN 10MG
     Route: 048
     Dates: start: 20191010

REACTIONS (6)
  - Musculoskeletal stiffness [Recovered/Resolved]
  - Gingival swelling [Recovered/Resolved]
  - Pain [Recovered/Resolved]
  - Tendon disorder [Recovered/Resolved]
  - Burning sensation [Recovered/Resolved]
  - Therapy change [Unknown]

NARRATIVE: CASE EVENT DATE: 20200420
